FAERS Safety Report 20662400 (Version 4)
Quarter: 2024Q1

REPORT INFORMATION
  Report Type: Spontaneous
  Country: US (occurrence: US)
  Receive Date: 20220401
  Receipt Date: 20240212
  Transmission Date: 20240410
  Serious: Yes (Other)
  Sender: FDA-Public Use
  Company Number: US-JNJFOC-20220364106

PATIENT
  Age: 42 Year
  Sex: Female

DRUGS (9)
  1. ELMIRON [Suspect]
     Active Substance: PENTOSAN POLYSULFATE SODIUM
     Indication: Cystitis interstitial
     Route: 048
     Dates: start: 2008
  2. ELMIRON [Suspect]
     Active Substance: PENTOSAN POLYSULFATE SODIUM
     Route: 048
     Dates: start: 20160428, end: 2020
  3. ELMIRON [Suspect]
     Active Substance: PENTOSAN POLYSULFATE SODIUM
     Route: 048
     Dates: end: 20210204
  4. CELEXA [Concomitant]
     Active Substance: CITALOPRAM HYDROBROMIDE
     Indication: Anxiety
     Route: 065
     Dates: start: 2018
  5. UBRELVY [Concomitant]
     Active Substance: UBROGEPANT
     Indication: Migraine
     Route: 065
     Dates: start: 2021
  6. EMGALITY [Concomitant]
     Active Substance: GALCANEZUMAB-GNLM
     Indication: Migraine
     Route: 065
     Dates: start: 2021
  7. ZYRTEC [Concomitant]
     Active Substance: CETIRIZINE HYDROCHLORIDE
     Indication: Multiple allergies
     Route: 065
     Dates: start: 2016
  8. ESCITALOPRAM [Concomitant]
     Active Substance: ESCITALOPRAM OXALATE
     Indication: Depression
     Route: 065
     Dates: start: 2016
  9. GABAPENTIN [Concomitant]
     Active Substance: GABAPENTIN
     Indication: Pain
     Route: 065
     Dates: start: 2020, end: 2021

REACTIONS (3)
  - Pigmentary maculopathy [Unknown]
  - Off label use [Unknown]
  - Product use issue [Unknown]

NARRATIVE: CASE EVENT DATE: 20160428
